FAERS Safety Report 5283798-2 (Version None)
Quarter: 2007Q2

REPORT INFORMATION
  Report Type: 
  Country: None (occurrence: None)
  Receive Date: 20070402
  Receipt Date: 20070327
  Transmission Date: 20071010
  Serious: Yes (Hospitalization)
  Sender: FDA-Public Use
  Company Number: CA-BOEHRINGER INGELHEIM PHARMACEUTICALS, INC.-2007-CN-00271CN

PATIENT
  Sex: Male

DRUGS (1)
  1. MICARDIS HCT [Suspect]
     Dates: start: 20060313, end: 20070117

REACTIONS (5)
  - DIZZINESS [None]
  - FALL [None]
  - FATIGUE [None]
  - HEART RATE DECREASED [None]
  - HYPOTENSION [None]
